FAERS Safety Report 8905489 (Version 1)
Quarter: 2012Q4

REPORT INFORMATION
  Report Type: 
  Country: SE (occurrence: SE)
  Receive Date: 20121109
  Receipt Date: 20121109
  Transmission Date: 20130627
  Serious: Yes (Hospitalization)
  Sender: FDA-Public Use
  Company Number: SE-PFIZER INC-2012276687

PATIENT
  Age: 48 Year
  Sex: Female
  Weight: 84.6 kg

DRUGS (6)
  1. GENOTROPIN [Suspect]
     Indication: GROWTH HORMONE DEFICIENCY
     Dosage: 0.5 mg, 1x/day, 7 injections/week
     Route: 058
     Dates: start: 20030311
  2. CORTONE [Concomitant]
     Indication: ACTH DECREASED
     Dosage: UNK
     Dates: start: 19990501
  3. MINIRIN [Concomitant]
     Indication: ADH DECREASED
     Dosage: UNK
     Dates: start: 19990501
  4. EVOREL [Concomitant]
     Indication: LUTEINIZING HORMONE DEFICIENCY
     Dosage: UNK
     Dates: start: 19991102
  5. EVOREL [Concomitant]
     Indication: FOLLICLE-STIMULATING HORMONE DEFICIENCY
  6. EVOREL [Concomitant]
     Indication: HYPOGONADISM FEMALE

REACTIONS (1)
  - Abdominal pain upper [Unknown]
